FAERS Safety Report 8371861-9 (Version None)
Quarter: 2012Q2

REPORT INFORMATION
  Report Type: 
  Country: None (occurrence: None)
  Receive Date: 20120518
  Receipt Date: 20120514
  Transmission Date: 20120825
  Serious: Yes (Other)
  Sender: FDA-Public Use
  Company Number: US-ROCHE-1040245

PATIENT
  Sex: Female
  Weight: 80.812 kg

DRUGS (2)
  1. ASPIRIN [Concomitant]
  2. ACCUTANE [Suspect]
     Indication: ACNE
     Route: 065
     Dates: start: 20050301, end: 20050601

REACTIONS (3)
  - DEPRESSION [None]
  - COLITIS ULCERATIVE [None]
  - INJURY [None]
